FAERS Safety Report 8389630-2 (Version None)
Quarter: 2012Q2

REPORT INFORMATION
  Report Type: 
  Country: None (occurrence: None)
  Receive Date: 20120528
  Receipt Date: 20120517
  Transmission Date: 20120825
  Serious: Yes (Hospitalization)
  Sender: FDA-Public Use
  Company Number: US-ROCHE-1070083

PATIENT
  Age: 63 Year
  Sex: Male
  Weight: 67.4 kg

DRUGS (5)
  1. PACLITAXEL [Suspect]
     Indication: OESOPHAGEAL ADENOCARCINOMA
     Dosage: OVER 1 HR ON DAYS 1, 8, 15, 22, 29 AND 36
     Route: 042
     Dates: start: 20120213
  2. CARBOPLATIN [Suspect]
     Indication: OESOPHAGEAL ADENOCARCINOMA
     Dosage: AUC=2, LAST DOSE PRIOR TO SAE 19/MAR/2012
     Route: 042
     Dates: start: 20120213
  3. HERCEPTIN [Suspect]
     Indication: OESOPHAGEAL ADENOCARCINOMA
     Route: 042
     Dates: start: 20120213
  4. HERCEPTIN [Suspect]
     Dosage: 19/MAR/2012
     Route: 042
  5. HERCEPTIN [Suspect]
     Route: 042

REACTIONS (3)
  - GASTRIC ULCER [None]
  - GASTRIC HAEMORRHAGE [None]
  - ANAEMIA [None]
